FAERS Safety Report 13399763 (Version 1)
Quarter: 2017Q2

REPORT INFORMATION
  Report Type: Spontaneous
  Country: US (occurrence: US)
  Receive Date: 20170404
  Receipt Date: 20170404
  Transmission Date: 20170830
  Serious: Yes (Other)
  Sender: FDA-Public Use
  Company Number: None

PATIENT
  Age: 38 Year
  Sex: Female
  Weight: 69.75 kg

DRUGS (1)
  1. CEPHALEXIN. [Suspect]
     Active Substance: CEPHALEXIN
     Indication: PHARYNGITIS STREPTOCOCCAL
     Dosage: ?          QUANTITY:20 CAPSULE(S);?
     Route: 048
     Dates: start: 20170328, end: 20170401

REACTIONS (6)
  - Diarrhoea [None]
  - Palpitations [None]
  - Vomiting [None]
  - Nausea [None]
  - Abdominal pain upper [None]
  - Anxiety [None]

NARRATIVE: CASE EVENT DATE: 20170331
